FAERS Safety Report 10179163 (Version 1)
Quarter: 2014Q2

REPORT INFORMATION
  Report Type: Spontaneous
  Country: US (occurrence: None)
  Receive Date: 20140516
  Receipt Date: 20140516
  Transmission Date: 20141212
  Serious: No
  Sender: FDA-Public Use
  Company Number: None

PATIENT
  Age: 53 Year
  Sex: Male

DRUGS (3)
  1. LATUDA [Suspect]
     Indication: SCHIZOPHRENIA
     Route: 048
     Dates: start: 20140318, end: 20140513
  2. TRAZODONE [Concomitant]
  3. HYDROXYZINE [Concomitant]

REACTIONS (1)
  - Pollakiuria [None]
